FAERS Safety Report 5661562-X (Version None)
Quarter: 2008Q1

REPORT INFORMATION
  Report Type: 
  Country: None (occurrence: None)
  Receive Date: 20080312
  Receipt Date: 20080303
  Transmission Date: 20080703
  Serious: Yes (Other)
  Sender: FDA-Public Use
  Company Number: PHRM2007FR02399

PATIENT
  Sex: Female

DRUGS (1)
  1. ZOMETA [Suspect]
     Indication: COMPLEX REGIONAL PAIN SYNDROME
     Dosage: 1 INFUSION/MONTH
     Dates: start: 20060501, end: 20061101

REACTIONS (6)
  - BONE DEBRIDEMENT [None]
  - FAILURE OF IMPLANT [None]
  - GINGIVAL PAIN [None]
  - LASER THERAPY [None]
  - OSTEONECROSIS [None]
  - PURULENT DISCHARGE [None]
